FAERS Safety Report 8735798 (Version 2)
Quarter: 2012Q4

REPORT INFORMATION
  Report Type: 
  Country: GB (occurrence: GB)
  Receive Date: 20120822
  Receipt Date: 20120910
  Transmission Date: 20130627
  Serious: Yes (Congenital Anomaly)
  Sender: FDA-Public Use
  Company Number: GB-RANBAXY-2012US-59151

PATIENT
  Sex: Male

DRUGS (6)
  1. LAMIVUDINE [Suspect]
     Indication: MATERNAL EXPOSURE DURING PREGNANCY
     Dosage: UNK
     Route: 064
     Dates: end: 20100610
  2. NEVIRAPINE [Suspect]
     Indication: MATERNAL EXPOSURE DURING PREGNANCY
     Dosage: UNK
     Route: 064
     Dates: end: 20100610
  3. ZIDOVUDINE [Suspect]
     Indication: MATERNAL EXPOSURE DURING PREGNANCY
     Dosage: UNK
     Route: 064
     Dates: end: 20100610
  4. TENOFOVIR [Suspect]
     Indication: MATERNAL EXPOSURE DURING PREGNANCY
     Dosage: UNK
     Route: 064
     Dates: start: 20100610
  5. ISENTRESS [Suspect]
     Indication: MATERNAL EXPOSURE DURING PREGNANCY
     Dosage: 800 mg/day
     Route: 064
     Dates: start: 20100610
  6. LOPINAVIR\RITONAVIR [Suspect]
     Indication: MATERNAL EXPOSURE DURING PREGNANCY
     Dosage: UNK
     Route: 064
     Dates: start: 20100610

REACTIONS (2)
  - Foetal exposure during pregnancy [Unknown]
  - Volvulus [Unknown]
